FAERS Safety Report 13766028 (Version 1)
Quarter: 2017Q3

REPORT INFORMATION
  Report Type: Spontaneous
  Country: US (occurrence: US)
  Receive Date: 20170718
  Receipt Date: 20170718
  Transmission Date: 20171127
  Serious: No
  Sender: FDA-Public Use
  Company Number: None

PATIENT
  Age: 59 Year
  Sex: Female

DRUGS (1)
  1. COSENTYX [Suspect]
     Active Substance: SECUKINUMAB

REACTIONS (5)
  - Haemorrhage [None]
  - Underdose [None]
  - Contusion [None]
  - Wrong technique in product usage process [None]
  - Nausea [None]

NARRATIVE: CASE EVENT DATE: 20170717
